FAERS Safety Report 9507491 (Version 1)
Quarter: 2013Q3

REPORT INFORMATION
  Report Type: Spontaneous
  Country: US (occurrence: US)
  Receive Date: 20130909
  Receipt Date: 20130909
  Transmission Date: 20140515
  Serious: No
  Sender: FDA-Public Use
  Company Number: US-ELI_LILLY_AND_COMPANY-US201308009445

PATIENT
  Sex: Female

DRUGS (5)
  1. CYMBALTA [Suspect]
     Indication: DEPRESSION
     Dosage: 30 MG, QD
     Route: 065
     Dates: start: 20130107, end: 20130113
  2. CYMBALTA [Suspect]
     Dosage: 30 MG, BID
     Route: 065
     Dates: start: 20130113, end: 20130730
  3. CYMBALTA [Suspect]
     Dosage: 40 MG, QD
     Route: 065
     Dates: start: 20130730, end: 201308
  4. CYMBALTA [Suspect]
     Dosage: 60 MG, QD
     Route: 065
     Dates: start: 201308
  5. TRAZODONE [Concomitant]
     Indication: INSOMNIA
     Dosage: 1 DF, EACH EVENING
     Route: 048

REACTIONS (3)
  - Aspartate aminotransferase increased [Unknown]
  - Alanine aminotransferase increased [Unknown]
  - Drug ineffective [Unknown]
